FAERS Safety Report 20365316 (Version 2)
Quarter: 2022Q2

REPORT INFORMATION
  Report Type: Report from Study
  Country: US (occurrence: US)
  Receive Date: 20220122
  Receipt Date: 20220628
  Transmission Date: 20220720
  Serious: Yes (Other)
  Sender: FDA-Public Use
  Company Number: US-MYLANLABS-2022M1005857

PATIENT
  Age: 32 Year
  Sex: Male
  Weight: 88.45 kg

DRUGS (5)
  1. CLOZAPINE [Suspect]
     Active Substance: CLOZAPINE
     Indication: Schizophrenia
     Dosage: UNK (800 UNKNOWN UNIT, 4 YEARS)
     Route: 065
  2. CELEBREX [Concomitant]
     Active Substance: CELECOXIB
     Dosage: UNK (100)
     Route: 065
  3. ARIPIPRAZOLE [Concomitant]
     Active Substance: ARIPIPRAZOLE
     Dosage: UNK (10)
     Route: 065
  4. ONDANSETRON [Concomitant]
     Active Substance: ONDANSETRON
     Dosage: UNK
     Route: 065
  5. BUSPIRONE [Concomitant]
     Active Substance: BUSPIRONE HYDROCHLORIDE
     Dosage: UNK (7.5)
     Route: 065

REACTIONS (2)
  - Neutropenia [Unknown]
  - Neutrophilia [Unknown]

NARRATIVE: CASE EVENT DATE: 20211230
